FAERS Safety Report 16217961 (Version 2)
Quarter: 2019Q2

REPORT INFORMATION
  Report Type: Spontaneous
  Country: US (occurrence: US)
  Receive Date: 20190419
  Receipt Date: 20190425
  Transmission Date: 20190711
  Serious: No
  Sender: FDA-Public Use
  Company Number: US-SHIRE-US201912571

PATIENT
  Age: 34 Year
  Sex: Female

DRUGS (1)
  1. NATPARA (PARATHYROID HORMONE) [Suspect]
     Active Substance: PARATHYROID HORMONE
     Indication: BLOOD CALCIUM ABNORMAL
     Dosage: UNK UNK, 1X/DAY:QD
     Route: 058
     Dates: start: 20190405

REACTIONS (15)
  - Bone pain [Unknown]
  - Headache [Unknown]
  - Eye pain [Unknown]
  - Arthralgia [Unknown]
  - Loose tooth [Unknown]
  - Inappropriate schedule of product administration [Unknown]
  - Gingival pain [Unknown]
  - Trismus [Unknown]
  - Pain in extremity [Unknown]
  - Palpitations [Unknown]
  - Oral pain [Unknown]
  - Dyspnoea [Unknown]
  - Dizziness [Unknown]
  - Muscle spasms [Unknown]
  - Neck pain [Unknown]

NARRATIVE: CASE EVENT DATE: 20190405
